FAERS Safety Report 7113109-9 (Version None)
Quarter: 2010Q4

REPORT INFORMATION
  Report Type: 
  Country: None (occurrence: None)
  Receive Date: 20101119
  Receipt Date: 20101108
  Transmission Date: 20110411
  Serious: Yes (Hospitalization, Other)
  Sender: FDA-Public Use
  Company Number: US-ELI_LILLY_AND_COMPANY-US201005001406

PATIENT
  Sex: Female

DRUGS (19)
  1. EVISTA [Suspect]
     Indication: OSTEOPOROSIS
     Dosage: 60 MG, DAILY (1/D)
  2. FORTEO [Suspect]
     Indication: OSTEOPOROSIS
     Dosage: 20 UG, DAILY (1/D)
     Dates: start: 20090101, end: 20100201
  3. FORTEO [Suspect]
     Dosage: 20 UG, DAILY (1/D)
     Dates: start: 20100303
  4. ASPIRIN [Concomitant]
     Dosage: 81 MG, DAILY (1/D)
  5. DILTIAZEM HCL [Concomitant]
     Dosage: 120 MG, UNK
  6. METOPROLOL [Concomitant]
     Dosage: 25 MG, DAILY (1/D)
  7. LASIX [Concomitant]
     Dosage: 40 MG, AS NEEDED
  8. POTASSIUM CHLORIDE [Concomitant]
     Dosage: 10 MEQ, AS NEEDED
  9. LEVOTHYROXINE SODIUM [Concomitant]
     Dosage: 50 UG, 3/W
  10. LEVOTHYROXINE SODIUM [Concomitant]
     Dosage: 75 UG, 4/W
  11. TEGRETOL [Concomitant]
     Indication: BIPOLAR I DISORDER
     Dosage: 200 MG, 3/D
  12. ADDERALL XR 10 [Concomitant]
     Dosage: 30 MG, EACH MORNING
  13. TOPAMAX [Concomitant]
     Dosage: 200 MG, EACH EVENING
  14. SEROQUEL [Concomitant]
     Dosage: 800 MG, EACH EVENING
  15. ZANAFLEX [Concomitant]
     Dosage: 4 MG, 3/D
  16. DARVOCET [Concomitant]
  17. TRAMADOL HCL [Concomitant]
     Dosage: 1 D/F, AS NEEDED
  18. ALLEGRA [Concomitant]
     Dosage: 180 MG, AS NEEDED
  19. PLAVIX [Concomitant]
     Indication: COAGULOPATHY
     Dosage: 75 MG, DAILY (1/D)
     Dates: start: 20101006

REACTIONS (22)
  - ALTERED STATE OF CONSCIOUSNESS [None]
  - ANKLE FRACTURE [None]
  - BLOOD PRESSURE DECREASED [None]
  - CONTUSION [None]
  - CRYING [None]
  - HAEMORRHAGE INTRACRANIAL [None]
  - HIP FRACTURE [None]
  - HYPERTONIC BLADDER [None]
  - JAW FRACTURE [None]
  - JOINT SWELLING [None]
  - LIMB CRUSHING INJURY [None]
  - NEURALGIA [None]
  - OEDEMA PERIPHERAL [None]
  - PAIN IN EXTREMITY [None]
  - PELVIC FRACTURE [None]
  - PLEURAL EFFUSION [None]
  - POSTURE ABNORMAL [None]
  - RIB FRACTURE [None]
  - ROAD TRAFFIC ACCIDENT [None]
  - TRANSIENT ISCHAEMIC ATTACK [None]
  - URINARY INCONTINENCE [None]
  - VENOUS INSUFFICIENCY [None]
